FAERS Safety Report 8102108-6 (Version None)
Quarter: 2012Q1

REPORT INFORMATION
  Report Type: 
  Country: None (occurrence: None)
  Receive Date: 20120131
  Receipt Date: 20120120
  Transmission Date: 20120608
  Serious: Yes (Other)
  Sender: FDA-Public Use
  Company Number: US-ELI_LILLY_AND_COMPANY-US201201006387

PATIENT
  Sex: Female
  Weight: 149 kg

DRUGS (1)
  1. BYETTA [Suspect]
     Dosage: 10 UG, BID
     Route: 058
     Dates: start: 20110501, end: 20120116

REACTIONS (2)
  - PANCREATITIS [None]
  - CHOLELITHIASIS [None]
